FAERS Safety Report 18801638 (Version 1)
Quarter: 2021Q1

REPORT INFORMATION
  Report Type: Spontaneous
  Country: RU (occurrence: RU)
  Receive Date: 20210128
  Receipt Date: 20210128
  Transmission Date: 20210419
  Serious: Yes (Other)
  Sender: FDA-Public Use
  Company Number: RU-ROCHE-2758189

PATIENT
  Sex: Female

DRUGS (8)
  1. RITUXIMAB. [Suspect]
     Active Substance: RITUXIMAB
     Dosage: R?CHOP REGIMEN
     Route: 065
     Dates: start: 20190324
  2. RITUXIMAB. [Suspect]
     Active Substance: RITUXIMAB
     Dosage: R?CHOP?MINI REGIMEN
     Route: 065
     Dates: start: 20180601
  3. BENDAMUSTINE [Suspect]
     Active Substance: BENDAMUSTINE
     Indication: B-CELL LYMPHOMA
     Dosage: 6 COURSES
     Route: 065
     Dates: start: 20160401
  4. RITUXIMAB. [Suspect]
     Active Substance: RITUXIMAB
     Dosage: MONOTHERAPY
     Route: 065
     Dates: start: 20190101
  5. OBINUTUZUMAB. [Suspect]
     Active Substance: OBINUTUZUMAB
     Indication: B-CELL LYMPHOMA
     Dosage: OBINUTUZUMAB+CVP REGIMEN 6 COURSES
     Route: 042
     Dates: start: 20200101
  6. RITUXIMAB. [Suspect]
     Active Substance: RITUXIMAB
     Dosage: MAINTENANCE MONO??R THERAPY
     Route: 065
     Dates: start: 20161101
  7. RITUXIMAB. [Suspect]
     Active Substance: RITUXIMAB
     Dosage: MONOTHERAPY
     Route: 065
     Dates: start: 20200901
  8. RITUXIMAB. [Suspect]
     Active Substance: RITUXIMAB
     Indication: B-CELL LYMPHOMA
     Dosage: 6 COURSES OF R?B
     Route: 065
     Dates: start: 20160401

REACTIONS (7)
  - Anaemia [Unknown]
  - Oral fungal infection [Unknown]
  - Leukopenia [Unknown]
  - Febrile neutropenia [Unknown]
  - Functional gastrointestinal disorder [Unknown]
  - Haematotoxicity [Unknown]
  - Disease recurrence [Unknown]
